FAERS Safety Report 19600537 (Version 1)
Quarter: 2021Q3

REPORT INFORMATION
  Report Type: Spontaneous
  Country: US (occurrence: US)
  Receive Date: 20210723
  Receipt Date: 20210723
  Transmission Date: 20211014
  Serious: Yes (Hospitalization)
  Sender: FDA-Public Use
  Company Number: US-STRIDES ARCOLAB LIMITED-2020SP013170

PATIENT
  Age: 61 Year
  Sex: Male

DRUGS (1)
  1. MYCOPHENOLATE MOFETIL. [Suspect]
     Active Substance: MYCOPHENOLATE MOFETIL
     Indication: URTICARIAL VASCULITIS
     Dosage: UNK
     Route: 065

REACTIONS (15)
  - Hypoxia [Recovered/Resolved]
  - Dyspnoea [Recovered/Resolved]
  - Pneumonia [Unknown]
  - Dizziness [Unknown]
  - Tachycardia [Unknown]
  - Leukocytosis [Unknown]
  - Thrombocytosis [Unknown]
  - Cough [Unknown]
  - Chest pain [Unknown]
  - Rhonchi [Unknown]
  - Lactic acidosis [Unknown]
  - Pasteurella infection [Unknown]
  - Pseudomonas infection [Unknown]
  - Tachypnoea [Unknown]
  - Off label use [Unknown]
